FAERS Safety Report 23597943 (Version 1)
Quarter: 2024Q1

REPORT INFORMATION
  Report Type: Spontaneous
  Country: US (occurrence: US)
  Receive Date: 20240305
  Receipt Date: 20240305
  Transmission Date: 20240410
  Serious: Yes (Other)
  Sender: FDA-Public Use
  Company Number: US-FERRINGPH-2024FE00959

PATIENT

DRUGS (1)
  1. CLENPIQ [Suspect]
     Active Substance: ANHYDROUS CITRIC ACID\MAGNESIUM OXIDE\SODIUM PICOSULFATE
     Indication: Bowel preparation
     Dosage: 2 BOTTLES 4 PM AND 8 PM
     Route: 065
     Dates: start: 20240222, end: 20240222

REACTIONS (8)
  - Loss of consciousness [Recovering/Resolving]
  - Skin laceration [Unknown]
  - Lip injury [Unknown]
  - Contusion [Unknown]
  - Headache [Unknown]
  - Nausea [Unknown]
  - Product use issue [Recovered/Resolved]
  - Treatment noncompliance [Recovered/Resolved]

NARRATIVE: CASE EVENT DATE: 20240222
